FAERS Safety Report 25831282 (Version 1)
Quarter: 2025Q3

REPORT INFORMATION
  Report Type: Spontaneous
  Country: US (occurrence: US)
  Receive Date: 20250922
  Receipt Date: 20250922
  Transmission Date: 20251021
  Serious: No
  Sender: ELI LILLY AND COMPANY
  Company Number: US-ELI_LILLY_AND_COMPANY-US202509012707

PATIENT
  Age: 70 Year
  Sex: Female

DRUGS (12)
  1. MOUNJARO [Suspect]
     Active Substance: TIRZEPATIDE
     Indication: Myocardial infarction
     Route: 058
     Dates: start: 202203
  2. MOUNJARO [Suspect]
     Active Substance: TIRZEPATIDE
     Indication: Myocardial infarction
     Route: 058
     Dates: start: 202203
  3. MOUNJARO [Suspect]
     Active Substance: TIRZEPATIDE
     Indication: Myocardial infarction
     Route: 058
     Dates: start: 202203
  4. MOUNJARO [Suspect]
     Active Substance: TIRZEPATIDE
     Indication: Myocardial infarction
     Route: 058
     Dates: start: 202203
  5. MOUNJARO [Suspect]
     Active Substance: TIRZEPATIDE
     Indication: Myocardial infarction
     Route: 058
  6. MOUNJARO [Suspect]
     Active Substance: TIRZEPATIDE
     Indication: Myocardial infarction
     Route: 058
  7. MOUNJARO [Suspect]
     Active Substance: TIRZEPATIDE
     Indication: Myocardial infarction
     Route: 058
  8. MOUNJARO [Suspect]
     Active Substance: TIRZEPATIDE
     Indication: Myocardial infarction
     Route: 058
  9. MOUNJARO [Suspect]
     Active Substance: TIRZEPATIDE
     Route: 058
  10. MOUNJARO [Suspect]
     Active Substance: TIRZEPATIDE
     Route: 058
  11. MOUNJARO [Suspect]
     Active Substance: TIRZEPATIDE
     Route: 058
  12. MOUNJARO [Suspect]
     Active Substance: TIRZEPATIDE
     Route: 058

REACTIONS (2)
  - Off label use [Unknown]
  - Constipation [Unknown]
